FAERS Safety Report 13191076 (Version 2)
Quarter: 2017Q1

REPORT INFORMATION
  Report Type: Report from Study
  Country: None (occurrence: GB)
  Receive Date: 20170207
  Receipt Date: 20170210
  Transmission Date: 20170428
  Serious: Yes (Hospitalization, Other)
  Sender: FDA-Public Use
  Company Number: GB-ABBVIE-17K-167-1861894-00

PATIENT
  Sex: Female

DRUGS (1)
  1. DUODOPA [Suspect]
     Active Substance: CARBIDOPA\LEVODOPA
     Indication: PARKINSON^S DISEASE
     Dosage: 1 X 100ML CASSETTE
     Route: 050
     Dates: start: 201611

REACTIONS (7)
  - Dystonia [Not Recovered/Not Resolved]
  - Somnolence [Unknown]
  - Pulmonary embolism [Unknown]
  - Euphoric mood [Unknown]
  - Dyspnoea [Unknown]
  - Hospitalisation [Unknown]
  - Breath sounds [Unknown]
